FAERS Safety Report 21068406 (Version 1)
Quarter: 2022Q3

REPORT INFORMATION
  Report Type: Spontaneous
  Country: US (occurrence: US)
  Receive Date: 20220712
  Receipt Date: 20220712
  Transmission Date: 20221027
  Serious: No
  Sender: FDA-Public Use
  Company Number: US-BRISTOL-MYERS SQUIBB COMPANY-2022-071396

PATIENT
  Age: 69 Year
  Sex: Female
  Weight: 48.1 kg

DRUGS (2)
  1. REVLIMID [Suspect]
     Active Substance: LENALIDOMIDE
     Indication: Plasma cell myeloma
     Dosage: FREQ : ONCE DAILY FOR 21 DAYS ON 7 DAYS OFF.
     Route: 048
     Dates: start: 20220613
  2. BIAXIN [Concomitant]
     Active Substance: CLARITHROMYCIN
     Indication: Product used for unknown indication
     Dosage: FREQ: DAILY FOR 5 DAYS
     Route: 048

REACTIONS (2)
  - Ear infection [Unknown]
  - White blood cell count decreased [Unknown]
